FAERS Safety Report 23029452 (Version 3)
Quarter: 2025Q4

REPORT INFORMATION
  Report Type: Spontaneous
  Country: EU (occurrence: EU)
  Receive Date: 20231004
  Receipt Date: 20251128
  Transmission Date: 20260117
  Serious: Yes (Congenital Anomaly, Other)
  Sender: VIIV
  Company Number: None

PATIENT
  Sex: Female
  Weight: 2.94 kg

DRUGS (3)
  1. DOVATO [Suspect]
     Active Substance: DOLUTEGRAVIR SODIUM\LAMIVUDINE
     Indication: HIV infection
     Dosage: 1 DF, QD, 50 MG/300 MG
  2. ISENTRESS [Suspect]
     Active Substance: RALTEGRAVIR POTASSIUM
     Indication: HIV infection
     Dosage: 1 DF
  3. TRUVADA [Suspect]
     Active Substance: EMTRICITABINE\TENOFOVIR DISOPROXIL FUMARATE
     Indication: HIV infection
     Dosage: 1 DF, QD, 200 MG/245 MG

REACTIONS (5)
  - Congenital genital malformation [Not Recovered/Not Resolved]
  - Virilism [Not Recovered/Not Resolved]
  - Hyperandrogenism [Not Recovered/Not Resolved]
  - Premature baby [Not Recovered/Not Resolved]
  - Foetal exposure during pregnancy [Unknown]

NARRATIVE: CASE EVENT DATE: 20220805
